FAERS Safety Report 10146332 (Version 1)
Quarter: 2014Q2

REPORT INFORMATION
  Report Type: Spontaneous
  Country: US (occurrence: None)
  Receive Date: 20140430
  Receipt Date: 20140430
  Transmission Date: 20141212
  Serious: Yes (Hospitalization)
  Sender: FDA-Public Use
  Company Number: None

PATIENT
  Age: 82 Year
  Sex: Male

DRUGS (17)
  1. LISINOPRIL [Suspect]
     Indication: HYPERTENSION
     Route: 048
     Dates: end: 20131109
  2. ALLOPURINOL [Concomitant]
  3. AMLODIPINE [Concomitant]
  4. ASA [Concomitant]
  5. CALCITRIOL [Concomitant]
  6. FOLIC ACID [Concomitant]
  7. INSULIN GLARGINE [Concomitant]
  8. LEVOTHYROXINE [Concomitant]
  9. REPAGLINIDE [Concomitant]
  10. CALCIUM ACETATE [Concomitant]
  11. PANCREALIPASE [Concomitant]
  12. SODIUM POLYSTYRENE SULFONATE [Concomitant]
  13. FUROSEMIDE [Concomitant]
  14. ATORVASTATIN [Concomitant]
  15. ESOMEPRAZOLE [Concomitant]
  16. CITRIC ACID SODIUM CITRATE [Concomitant]
  17. METOPROLOL [Concomitant]

REACTIONS (1)
  - Hyponatraemia [None]
